FAERS Safety Report 9341149 (Version 2)
Quarter: 2013Q2

REPORT INFORMATION
  Report Type: Spontaneous
  Country: FR (occurrence: FR)
  Receive Date: 20130611
  Receipt Date: 20130614
  Transmission Date: 20140414
  Serious: Yes (Hospitalization, Other)
  Sender: FDA-Public Use
  Company Number: FR-RANBAXY-2013RR-70090

PATIENT
  Age: 68 Year
  Sex: Female

DRUGS (3)
  1. AMOXICILLIN/CLAVULANIC ACID [Suspect]
     Indication: BRONCHITIS
     Dosage: UNK
     Route: 065
  2. ERYTHROMYCIN [Suspect]
     Indication: BRONCHITIS
     Dosage: UNK
     Route: 065
  3. MOXIFLOXACIN [Suspect]
     Indication: BRONCHITIS
     Dosage: UNK
     Route: 065

REACTIONS (3)
  - Drug reaction with eosinophilia and systemic symptoms [Recovered/Resolved]
  - Fulminant type 1 diabetes mellitus [Not Recovered/Not Resolved]
  - Left ventricular dysfunction [Recovered/Resolved]
